FAERS Safety Report 16428283 (Version 3)
Quarter: 2019Q3

REPORT INFORMATION
  Report Type: Report from Study
  Country: US (occurrence: US)
  Receive Date: 20190613
  Receipt Date: 20190719
  Transmission Date: 20191004
  Serious: Yes (Hospitalization)
  Sender: FDA-Public Use
  Company Number: US-ACTELION-A-US2018-180665

PATIENT
  Age: 19 Year
  Sex: Female
  Weight: 99.77 kg

DRUGS (8)
  1. UPTRAVI [Suspect]
     Active Substance: SELEXIPAG
     Dosage: 800 MCG, BID
     Route: 048
  2. TADALAFIL. [Concomitant]
     Active Substance: TADALAFIL
  3. UPTRAVI [Suspect]
     Active Substance: SELEXIPAG
     Indication: PULMONARY ARTERIAL HYPERTENSION
     Dosage: 1000 MCG, BID
     Route: 048
     Dates: start: 20190327
  4. UPTRAVI [Suspect]
     Active Substance: SELEXIPAG
     Dosage: 200 MCG, BID
     Route: 048
  5. TYVASO [Concomitant]
     Active Substance: TREPROSTINIL
  6. LETAIRIS [Concomitant]
     Active Substance: AMBRISENTAN
  7. REMODULIN [Concomitant]
     Active Substance: TREPROSTINIL
  8. UPTRAVI [Suspect]
     Active Substance: SELEXIPAG
     Dosage: 600 MCG, BID
     Route: 048

REACTIONS (15)
  - Malaise [Recovering/Resolving]
  - Nausea [Unknown]
  - Nasopharyngitis [Unknown]
  - Migraine [Unknown]
  - Lung disorder [Unknown]
  - Pain [Unknown]
  - Hypopnoea [Unknown]
  - Arthralgia [Unknown]
  - Pulmonary oedema [Unknown]
  - Dehydration [Unknown]
  - Catheter placement [Unknown]
  - Therapy change [Unknown]
  - Vomiting [Unknown]
  - Abdominal pain upper [Unknown]
  - Diarrhoea [Unknown]

NARRATIVE: CASE EVENT DATE: 20190628
